FAERS Safety Report 4609824-9 (Version None)
Quarter: 2005Q1

REPORT INFORMATION
  Report Type: 
  Country: None (occurrence: None)
  Receive Date: 20050316
  Receipt Date: 20050304
  Transmission Date: 20050727
  Serious: Yes (Other)
  Sender: FDA-Public Use
  Company Number: 200511754US

PATIENT
  Sex: Male

DRUGS (8)
  1. KETEK [Suspect]
     Indication: BRONCHITIS
     Route: 048
     Dates: start: 20041216, end: 20050208
  2. KETEK [Suspect]
     Indication: PHARYNGITIS
     Route: 048
     Dates: start: 20041216, end: 20050208
  3. KETEK [Suspect]
     Indication: UPPER RESPIRATORY TRACT INFECTION
     Route: 048
     Dates: start: 20041216, end: 20050208
  4. INDERAL [Concomitant]
  5. HYTRIN [Concomitant]
  6. ALLEGRA-D [Concomitant]
     Dosage: DOSE: 60/120
  7. LODINE [Concomitant]
  8. XANAX [Concomitant]

REACTIONS (5)
  - BLOOD BILIRUBIN INCREASED [None]
  - HAEMOLYTIC ANAEMIA [None]
  - JAUNDICE [None]
  - SPLENOMEGALY [None]
  - THROMBOCYTOPENIA [None]
